FAERS Safety Report 10031280 (Version 3)
Quarter: 2014Q2

REPORT INFORMATION
  Report Type: Spontaneous
  Country: JP (occurrence: JP)
  Receive Date: 20140324
  Receipt Date: 20140428
  Transmission Date: 20141212
  Serious: Yes (Death)
  Sender: FDA-Public Use
  Company Number: JP-009507513-1403JPN010044

PATIENT
  Age: 61 Year
  Sex: Female
  Weight: 45.5 kg

DRUGS (4)
  1. REFLEX [Suspect]
     Indication: DEPRESSION
     Dosage: 15 MG, QD
     Route: 048
     Dates: start: 20140304, end: 20140308
  2. ABILIFY [Suspect]
     Indication: DEPRESSION
     Dosage: 3 MG, QD
     Route: 048
     Dates: start: 20140214, end: 20140308
  3. VALSARTAN [Concomitant]
     Indication: HYPERTENSION
     Dosage: 80 MG DAILY
     Route: 048
  4. ASPIRIN [Concomitant]
     Indication: HYPERTENSION
     Dosage: 100 MG DAILY
     Route: 048

REACTIONS (1)
  - Cardiac failure [Fatal]
